FAERS Safety Report 7413304 (Version 16)
Quarter: 2012Q4

REPORT INFORMATION
  Report Type: 
  Country: CA (occurrence: CA)
  Receive Date: 20100608
  Receipt Date: 20120911
  Transmission Date: 20130627
  Serious: Yes (Death, Hospitalization, Other)
  Sender: FDA-Public Use
  Company Number: PHHY2009CA42642

PATIENT
  Age: 53 Year
  Sex: Female

DRUGS (10)
  1. SANDOSTATIN LAR [Suspect]
     Indication: CARCINOID TUMOUR
     Dosage: 30 mg once a month
     Route: 030
     Dates: start: 20090604, end: 20100118
  2. SANDOSTATIN LAR [Suspect]
     Dosage: 20 mg every 4 weeks
     Route: 030
  3. SANDOSTATIN LAR [Suspect]
     Dosage: 30 mg every 4 weeks
     Route: 030
  4. SANDOSTATIN LAR [Suspect]
     Dosage: 30 mg, monthly
     Route: 030
  5. SANDOSTATIN LAR [Suspect]
     Dosage: 30 mg, every four weeks
     Route: 030
  6. SANDOSTATIN LAR [Suspect]
     Dosage: 20 mg once a month
     Route: 030
     Dates: end: 20120618
  7. AFINITOR [Suspect]
     Indication: CARCINOID TUMOUR
     Dosage: UNK UKN, UNK
     Route: 048
     Dates: start: 20100705
  8. RADIOTHERAPY [Concomitant]
  9. MORPHINE [Concomitant]
  10. CHEMOTHERAPEUTICS [Concomitant]
     Dates: start: 201204

REACTIONS (24)
  - Death [Fatal]
  - Pain [Unknown]
  - Salmonellosis [Unknown]
  - Diarrhoea [Unknown]
  - Blood pressure diastolic decreased [Unknown]
  - Heart rate increased [Unknown]
  - Malignant neoplasm progression [Unknown]
  - Metastases to spine [Unknown]
  - Abdominal pain [Unknown]
  - Blood pressure systolic increased [Unknown]
  - Hyperhidrosis [Unknown]
  - Malaise [Unknown]
  - Hunger [Unknown]
  - Back pain [Unknown]
  - Weight decreased [Unknown]
  - Insomnia [Unknown]
  - Feeling abnormal [Unknown]
  - Musculoskeletal chest pain [Recovering/Resolving]
  - Fluid retention [Unknown]
  - Injection site pain [Recovering/Resolving]
  - Drug ineffective [Unknown]
  - Fatigue [Not Recovered/Not Resolved]
  - Decreased appetite [Unknown]
  - Vomiting [Unknown]
